FAERS Safety Report 8695955 (Version 3)
Quarter: 2012Q4

REPORT INFORMATION
  Report Type: 
  Country: US (occurrence: US)
  Receive Date: 20120801
  Receipt Date: 20121002
  Transmission Date: 20130627
  Serious: Yes (Hospitalization)
  Sender: FDA-Public Use
  Company Number: US-BIOGENIDEC-2012BI028053

PATIENT
  Age: 44 Year
  Sex: Female

DRUGS (1)
  1. TYSABRI [Suspect]
     Indication: MULTIPLE SCLEROSIS
     Route: 042
     Dates: start: 20080109, end: 20080206

REACTIONS (4)
  - Thrombocytopenia [Recovered/Resolved]
  - Idiopathic thrombocytopenic purpura [Unknown]
  - Pancytopenia [Unknown]
  - Platelet count decreased [Unknown]
